FAERS Safety Report 24863479 (Version 4)
Quarter: 2025Q3

REPORT INFORMATION
  Report Type: Spontaneous
  Country: US (occurrence: US)
  Receive Date: 20250120
  Receipt Date: 20250703
  Transmission Date: 20251021
  Serious: Yes (Other)
  Sender: BRISTOL-MYERS SQUIBB COMPANY
  Company Number: US-BRISTOL-MYERS SQUIBB COMPANY-2025-006315

PATIENT
  Age: 69 Year
  Sex: Female
  Weight: 113.4 kg

DRUGS (2)
  1. REVLIMID [Suspect]
     Active Substance: LENALIDOMIDE
     Indication: Plasma cell myeloma
     Dosage: DAILY FOR 21 DAYS ON THEN 7 DAYS OFF
     Route: 048
     Dates: start: 20250301
  2. REVLIMID [Suspect]
     Active Substance: LENALIDOMIDE
     Route: 048

REACTIONS (5)
  - Myalgia [Unknown]
  - Diarrhoea [Recovering/Resolving]
  - Ophthalmic migraine [Unknown]
  - Retinal vein occlusion [Unknown]
  - Diplopia [Recovering/Resolving]
